FAERS Safety Report 7592389-X (Version None)
Quarter: 2011Q3

REPORT INFORMATION
  Report Type: 
  Country: None (occurrence: None)
  Receive Date: 20110706
  Receipt Date: 20110630
  Transmission Date: 20111222
  Serious: Yes (Other)
  Sender: FDA-Public Use
  Company Number: JP-SANOFI-AVENTIS-2011SA030816

PATIENT
  Age: 83 Year
  Sex: Male

DRUGS (6)
  1. PLAVIX [Suspect]
     Route: 048
     Dates: end: 20101130
  2. SIGMART [Suspect]
     Route: 065
     Dates: end: 20101130
  3. EC DOPARL [Suspect]
     Route: 048
     Dates: end: 20101130
  4. ANPLAG [Suspect]
     Dates: end: 20101130
  5. LIPITOR [Suspect]
     Route: 048
     Dates: end: 20101130
  6. ALLOPURINOL [Suspect]
     Route: 048
     Dates: end: 20101130

REACTIONS (1)
  - DERMATITIS EXFOLIATIVE [None]
